FAERS Safety Report 10027948 (Version 1)
Quarter: 2014Q1

REPORT INFORMATION
  Report Type: Spontaneous
  Country: FR (occurrence: FR)
  Receive Date: 20140321
  Receipt Date: 20140321
  Transmission Date: 20141002
  Serious: Yes (Other)
  Sender: FDA-Public Use
  Company Number: FR-JNJFOC-20140310684

PATIENT
  Age: 32 Year
  Sex: Male

DRUGS (4)
  1. INFLIXIMAB, RECOMBINANT [Suspect]
     Indication: SACROILIITIS
     Route: 042
     Dates: start: 200904, end: 201010
  2. INFLIXIMAB, RECOMBINANT [Suspect]
     Indication: SACROILIITIS
     Route: 042
     Dates: start: 201208, end: 20131230
  3. INFLIXIMAB, RECOMBINANT [Suspect]
     Indication: SPONDYLITIS
     Route: 042
     Dates: start: 200904, end: 201010
  4. INFLIXIMAB, RECOMBINANT [Suspect]
     Indication: SPONDYLITIS
     Route: 042
     Dates: start: 201208, end: 20131230

REACTIONS (3)
  - Lupus-like syndrome [Unknown]
  - Psoriasis [Unknown]
  - Therapeutic response decreased [Unknown]
